FAERS Safety Report 8657669 (Version 3)
Quarter: 2012Q4

REPORT INFORMATION
  Report Type: 
  Country: SE (occurrence: SE)
  Receive Date: 20120710
  Receipt Date: 20121018
  Transmission Date: 20130627
  Serious: Yes (Other)
  Sender: FDA-Public Use
  Company Number: SE-BRISTOL-MYERS SQUIBB COMPANY-16730152

PATIENT

DRUGS (1)
  1. ORENCIA [Suspect]
     Dosage: Drug stopped for three months

REACTIONS (1)
  - Pericarditis [Unknown]
